FAERS Safety Report 11282973 (Version 5)
Quarter: 2016Q1

REPORT INFORMATION
  Report Type: Report from Study
  Country: FR (occurrence: FR)
  Receive Date: 20150720
  Receipt Date: 20160325
  Transmission Date: 20160525
  Serious: Yes (Hospitalization)
  Sender: FDA-Public Use
  Company Number: FR-ROCHE-1607440

PATIENT
  Age: 60 Year
  Sex: Male
  Weight: 69.3 kg

DRUGS (12)
  1. KARDEGIC [Concomitant]
     Active Substance: ASPIRIN LYSINE
  2. PREDNISONE. [Suspect]
     Active Substance: PREDNISONE
     Indication: DIFFUSE LARGE B-CELL LYMPHOMA
     Route: 065
     Dates: start: 20150522, end: 20150720
  3. VINDESINE [Suspect]
     Active Substance: VINDESINE
     Indication: DIFFUSE LARGE B-CELL LYMPHOMA
     Route: 065
     Dates: start: 20150522, end: 20150720
  4. CIPROFLOXACINE [Concomitant]
     Active Substance: CIPROFLOXACIN
  5. OBINUTUZUMAB [Suspect]
     Active Substance: OBINUTUZUMAB
     Indication: DIFFUSE LARGE B-CELL LYMPHOMA
     Dosage: MOST RECENT DOSE PRIOR TO EVENT (PRIOR TO FIRST EPISODE OF MUCOSITIS):12/JUN/2015?MOST RECENT DOSE P
     Route: 042
     Dates: start: 20150522
  6. DIFFU K [Concomitant]
     Active Substance: POTASSIUM CHLORIDE
  7. GLUCIDION [Concomitant]
     Active Substance: GLUCOSE, LIQUID\POTASSIUM CHLORIDE\SODIUM CHLORIDE
  8. DOXORUBICIN [Suspect]
     Active Substance: DOXORUBICIN
     Indication: DIFFUSE LARGE B-CELL LYMPHOMA
     Route: 065
     Dates: start: 20150522, end: 20150720
  9. CYCLOPHOSPHAMIDE. [Suspect]
     Active Substance: CYCLOPHOSPHAMIDE
     Indication: DIFFUSE LARGE B-CELL LYMPHOMA
     Route: 065
     Dates: start: 20150522, end: 20150720
  10. BLEOMYCIN [Suspect]
     Active Substance: BLEOMYCIN SULFATE
     Indication: DIFFUSE LARGE B-CELL LYMPHOMA
     Route: 065
     Dates: start: 20150522, end: 20150720
  11. INEXIUM [Concomitant]
     Active Substance: ESOMEPRAZOLE
  12. VANCOMYCINE [Concomitant]
     Active Substance: VANCOMYCIN

REACTIONS (2)
  - Febrile bone marrow aplasia [Recovered/Resolved with Sequelae]
  - Mucosal inflammation [Recovered/Resolved]

NARRATIVE: CASE EVENT DATE: 20150617
